FAERS Safety Report 16664492 (Version 2)
Quarter: 2019Q3

REPORT INFORMATION
  Report Type: Spontaneous
  Country: CI (occurrence: CI)
  Receive Date: 20190802
  Receipt Date: 20190821
  Transmission Date: 20191004
  Serious: No
  Sender: FDA-Public Use
  Company Number: PHHY2019CI177958

PATIENT
  Age: 17 Year
  Sex: Female

DRUGS (1)
  1. TEGRETOL [Suspect]
     Active Substance: CARBAMAZEPINE
     Indication: AFFECTIVE DISORDER
     Dosage: 1 DF, QD
     Route: 048

REACTIONS (3)
  - Pharyngitis [Unknown]
  - Skin exfoliation [Unknown]
  - Pruritus [Unknown]
